FAERS Safety Report 6584137-7 (Version None)
Quarter: 2010Q1

REPORT INFORMATION
  Report Type: 
  Country: None (occurrence: None)
  Receive Date: 20100216
  Receipt Date: 20100208
  Transmission Date: 20100710
  Serious: Yes (Hospitalization)
  Sender: FDA-Public Use
  Company Number: US-JNJFOC-20100204585

PATIENT
  Age: 59 Year
  Sex: Female
  Weight: 45.36 kg

DRUGS (6)
  1. ARESTIN [Suspect]
     Indication: DRUG USE FOR UNKNOWN INDICATION
     Route: 065
  2. ALBUTEROL INHALERS [Concomitant]
     Dosage: AS NECESSARY
     Route: 065
  3. ADVAIR DISKUS 100/50 [Concomitant]
     Route: 065
  4. CARTIA XT [Concomitant]
     Route: 065
  5. ASPIRIN [Concomitant]
     Route: 065
  6. VITAMINE E [Concomitant]
     Route: 065

REACTIONS (1)
  - ASTHMA [None]
